FAERS Safety Report 10086183 (Version 1)
Quarter: 2014Q2

REPORT INFORMATION
  Report Type: Spontaneous
  Country: GB (occurrence: None)
  Receive Date: 20140416
  Receipt Date: 20140416
  Transmission Date: 20141212
  Serious: Yes (Other)
  Sender: FDA-Public Use
  Company Number: 7281876

PATIENT
  Age: 84 Year
  Sex: Female

DRUGS (3)
  1. METFORMIN (METFORMIN) (METFORMIN) [Suspect]
     Indication: DIABETES MELLITUS
     Dosage: THERAPY DATES  (SINCE YEARS)
     Route: 048
  2. LEVOTHYROXINE (LEVOTHYROXINE) (LEVOTHYROXINE) [Suspect]
     Indication: HYPOTHYROIDISM
     Dosage: 25 MCG (25 NCG, 1 IN 1 D) THERAPY DATES (SINCE YEARS)
     Route: 048
  3. LEVOTHYROXINE (LEVOTHYROXINE) (LEVOTHYROXINE SODIUM) [Suspect]
     Indication: HYPOTHYROIDISM
     Dosage: 50 MCG (50 MCG, 1 IN 1 D), ORAL  THERAPY (SINCE YEARS)
     Route: 048

REACTIONS (2)
  - Cardiac disorder [None]
  - Drug interaction [None]
